FAERS Safety Report 5923067-8 (Version None)
Quarter: 2008Q4

REPORT INFORMATION
  Report Type: 
  Country: None (occurrence: None)
  Receive Date: 20081018
  Receipt Date: 20081006
  Transmission Date: 20090506
  Serious: Yes (Other)
  Sender: FDA-Public Use
  Company Number: BR-PFIZER INC-2008084434

PATIENT
  Sex: Male
  Weight: 70 kg

DRUGS (1)
  1. CELEBRA [Suspect]
     Indication: ARTHRITIS
     Route: 048
     Dates: start: 20081001, end: 20081001

REACTIONS (1)
  - CONVULSION [None]
